FAERS Safety Report 12121771 (Version 1)
Quarter: 2016Q1

REPORT INFORMATION
  Report Type: Spontaneous
  Country: US (occurrence: US)
  Receive Date: 20160226
  Receipt Date: 20160226
  Transmission Date: 20160526
  Serious: No
  Sender: FDA-Public Use
  Company Number: US-ALLERGAN-1207548US

PATIENT
  Sex: Female
  Weight: 90.7 kg

DRUGS (1)
  1. REFRESH OPTIVE [Suspect]
     Active Substance: CARBOXYMETHYLCELLULOSE SODIUM\GLYCERIN
     Indication: DRY EYE
     Dosage: 2 TO 3 TIMES A DAY
     Route: 047
     Dates: start: 20120514, end: 20120521

REACTIONS (2)
  - Abnormal sensation in eye [Recovered/Resolved]
  - Drug ineffective [Unknown]
